FAERS Safety Report 7729931-1 (Version None)
Quarter: 2011Q3

REPORT INFORMATION
  Report Type: 
  Country: None (occurrence: None)
  Receive Date: 20110906
  Receipt Date: 20110822
  Transmission Date: 20111222
  Serious: Yes (Hospitalization)
  Sender: FDA-Public Use
  Company Number: PHEH2011US02384

PATIENT
  Sex: Female

DRUGS (12)
  1. CYCLOBENZAPRINE [Suspect]
     Dosage: UNK UKN, UNK
  2. PENICILLIN [Suspect]
     Dosage: UNK UKN, UNK
  3. VINCODIN [Suspect]
  4. VERAPAMIL EXTENDED-RELEASE [Concomitant]
     Dosage: 240 MG, UNK
  5. TEQUIN [Suspect]
     Dosage: UNK UKN, UNK
  6. PRAVASTATIN SODIUM [Concomitant]
     Dosage: UNK UKN, UNK
  7. ERYTHROMYCIN [Suspect]
     Dosage: UNK UKN, UNK
  8. ASPIRIN [Concomitant]
     Dosage: 81 MG, UNK
  9. DIOVAN HCT [Suspect]
     Dosage: UNK UKN, UNK
  10. CODEINE [Suspect]
     Dosage: UNK UKN, UNK
  11. SULFUR [Suspect]
  12. PNEUMONIA SHOT [Suspect]

REACTIONS (11)
  - HYPERSENSITIVITY [None]
  - HYPOAESTHESIA [None]
  - MUSCLE SPASMS [None]
  - HEART RATE DECREASED [None]
  - NAUSEA [None]
  - POLLAKIURIA [None]
  - SWELLING FACE [None]
  - PHARYNGEAL OEDEMA [None]
  - VOMITING [None]
  - HYPOTENSION [None]
  - HEART RATE INCREASED [None]
